FAERS Safety Report 10018541 (Version 2)
Quarter: 2014Q1

REPORT INFORMATION
  Report Type: Report from Study
  Country: US (occurrence: US)
  Receive Date: 20140318
  Receipt Date: 20140318
  Transmission Date: 20141002
  Serious: Yes (Hospitalization)
  Sender: FDA-Public Use
  Company Number: US-ELI_LILLY_AND_COMPANY-US201312005622

PATIENT
  Age: 81 Year
  Sex: Male
  Weight: 79 kg

DRUGS (16)
  1. MYOSTATIN ANTIBODY (LA424) LY2495655 IV [Suspect]
     Indication: MUSCLE ATROPHY
     Dosage: 300 MG, CYCLICAL
     Route: 042
     Dates: start: 20121129
  2. GEMCITABINE HYDROCHLORIDE [Suspect]
     Indication: MUSCLE ATROPHY
     Dosage: 500 MG/M2, CYCLICAL
     Route: 042
     Dates: start: 20121129
  3. ALBUTEROL                          /00139502/ [Concomitant]
  4. ASPIRIN [Concomitant]
  5. ATENOLOL [Concomitant]
  6. CITALOPRAM                         /00582602/ [Concomitant]
  7. CYANOCOBALAMIN [Concomitant]
  8. IBUPROFEN [Concomitant]
  9. IPRATROPIUM [Concomitant]
  10. METFORMIN                          /00082702/ [Concomitant]
  11. OMEPRAZOLE [Concomitant]
  12. ONDANSETRON                        /00955302/ [Concomitant]
  13. SYSTANE [Concomitant]
  14. SIMVASTATIN [Concomitant]
  15. CLONAZEPAM [Concomitant]
  16. MIRTAZAPINE [Concomitant]

REACTIONS (1)
  - Acute respiratory failure [Recovered/Resolved]
